FAERS Safety Report 12337973 (Version 5)
Quarter: 2017Q1

REPORT INFORMATION
  Report Type: Spontaneous
  Country: US (occurrence: US)
  Receive Date: 20160505
  Receipt Date: 20170109
  Transmission Date: 20170428
  Serious: Yes (Hospitalization)
  Sender: FDA-Public Use
  Company Number: US-JNJFOC-20160426874

PATIENT
  Sex: Female
  Weight: 54 kg

DRUGS (19)
  1. ALEVE [Concomitant]
     Active Substance: NAPROXEN SODIUM
     Indication: PAIN
     Route: 048
  2. TYLENOL WITH CODEINE [Concomitant]
     Active Substance: ACETAMINOPHEN\CODEINE PHOSPHATE
     Indication: BACK PAIN
  3. CEFEPIME [Concomitant]
     Active Substance: CEFEPIME HYDROCHLORIDE
     Route: 042
  4. LEVOFLOXACIN. [Concomitant]
     Active Substance: LEVOFLOXACIN
     Route: 048
  5. LEVOTHYROXINE. [Concomitant]
     Active Substance: LEVOTHYROXINE
     Dosage: QD
     Route: 048
  6. PROMETHAZINE [Concomitant]
     Active Substance: PROMETHAZINE\PROMETHAZINE HYDROCHLORIDE
     Dosage: 6.25/5MG/5ML SYRUP
     Route: 048
  7. IMBRUVICA [Suspect]
     Active Substance: IBRUTINIB
     Indication: CHRONIC LYMPHOCYTIC LEUKAEMIA
     Route: 048
     Dates: start: 20160329, end: 201611
  8. ANORO ELLIPTA [Concomitant]
     Active Substance: UMECLIDINIUM BROMIDE\VILANTEROL TRIFENATATE
     Indication: BRONCHITIS
     Dosage: 1 PUFF DAILY
     Route: 055
  9. DOXYCYCLINE HYCLATE. [Concomitant]
     Active Substance: DOXYCYCLINE HYCLATE
     Dosage: CAPS
     Route: 048
  10. HEPARIN FLUSH [Concomitant]
     Active Substance: HEPARIN SODIUM
     Dosage: 100 UNITS/5 MLS
     Route: 042
  11. MEGACE [Concomitant]
     Active Substance: MEGESTROL ACETATE
     Indication: APPETITE DISORDER
     Route: 048
  12. FISH OIL [Concomitant]
     Active Substance: FISH OIL
     Route: 048
  13. VITAMIN D [Concomitant]
     Active Substance: CHOLECALCIFEROL
     Dosage: 1000 UNIT TAB, QC
     Route: 048
  14. CALCIUM [Concomitant]
     Active Substance: CALCIUM
     Route: 048
  15. HYDROCODONE/ACETAMINOPHEN [Concomitant]
     Active Substance: ACETAMINOPHEN\HYDROCODONE
     Dosage: 5/325MG AND 10/325 MG
     Route: 048
  16. FISH OIL OMEGA 3 [Concomitant]
     Route: 048
  17. SODIUM CHLORIDE. [Concomitant]
     Active Substance: SODIUM CHLORIDE
     Dosage: 0.9% FOR IRRIGATION
     Route: 042
  18. CHLORPHENIRAMINE POLISTIREX W/HYDROCODONE POL [Concomitant]
     Dosage: AS DIRECTED
     Route: 048
  19. MONTELUKAST SODIUM. [Concomitant]
     Active Substance: MONTELUKAST SODIUM
     Route: 048

REACTIONS (7)
  - Asthenia [Not Recovered/Not Resolved]
  - Bronchitis [Recovering/Resolving]
  - Confusional state [Recovering/Resolving]
  - Pneumonia [Recovering/Resolving]
  - Visual acuity reduced [Recovering/Resolving]
  - Dyspnoea [Unknown]
  - Dysphonia [Recovering/Resolving]

NARRATIVE: CASE EVENT DATE: 2016
